FAERS Safety Report 25217867 (Version 3)
Quarter: 2025Q2

REPORT INFORMATION
  Report Type: Spontaneous
  Country: US (occurrence: US)
  Receive Date: 20250421
  Receipt Date: 20250616
  Transmission Date: 20250716
  Serious: Yes (Hospitalization)
  Sender: BOEHRINGER INGELHEIM
  Company Number: US-BoehringerIngelheim-2025-BI-022273

PATIENT
  Sex: Male

DRUGS (3)
  1. SPIRIVA RESPIMAT [Suspect]
     Active Substance: TIOTROPIUM BROMIDE
     Indication: Dyspnoea
     Dosage: 2 SPRAYS
     Dates: start: 2024
  2. SYMBICORT [Concomitant]
     Active Substance: BUDESONIDE\FORMOTEROL FUMARATE DIHYDRATE
     Indication: Dyspnoea
     Dosage: 2 PUFFS
  3. PHENYTOIN [Concomitant]
     Active Substance: PHENYTOIN
     Indication: Seizure

REACTIONS (4)
  - Loss of consciousness [Recovered/Resolved]
  - Dyspnoea [Not Recovered/Not Resolved]
  - Product delivery mechanism issue [Unknown]
  - Drug ineffective [Unknown]
